FAERS Safety Report 22270160 (Version 1)
Quarter: 2023Q2

REPORT INFORMATION
  Report Type: Spontaneous
  Country: US (occurrence: None)
  Receive Date: 20230428
  Receipt Date: 20230428
  Transmission Date: 20230722
  Serious: Yes (Other)
  Sender: FDA-Public Use
  Company Number: None

PATIENT
  Age: 40 Year
  Sex: Female
  Weight: 63 kg

DRUGS (1)
  1. HERBALS\HEXAHYDROCANNABINOL [Suspect]
     Active Substance: HERBALS\HEXAHYDROCANNABINOL

REACTIONS (1)
  - Syncope [None]

NARRATIVE: CASE EVENT DATE: 20230422
